FAERS Safety Report 9003905 (Version 1)
Quarter: 2013Q1

REPORT INFORMATION
  Report Type: Report from Study
  Country: CA (occurrence: CA)
  Receive Date: 20130108
  Receipt Date: 20130108
  Transmission Date: 20140127
  Serious: Yes (Other)
  Sender: FDA-Public Use
  Company Number: CA-JNJFOC-20121209949

PATIENT
  Age: 33 None
  Sex: Female
  Weight: 81 kg

DRUGS (3)
  1. REMICADE [Suspect]
     Indication: CROHN^S DISEASE
     Dosage: 3RD DOSE
     Route: 042
     Dates: start: 20121211
  2. REMICADE [Suspect]
     Indication: CROHN^S DISEASE
     Dosage: #3 ON INDUCTION
     Route: 042
     Dates: start: 20121026
  3. REMICADE [Suspect]
     Indication: CROHN^S DISEASE
     Dosage: 2 ND INFUSION
     Route: 042
     Dates: start: 201211

REACTIONS (9)
  - Hyperventilation [Recovered/Resolved]
  - Dyspnoea [Recovered/Resolved]
  - Chest discomfort [Recovered/Resolved]
  - Palpitations [Recovered/Resolved]
  - Anxiety [Recovered/Resolved]
  - Infusion related reaction [Recovered/Resolved]
  - Swollen tongue [Recovered/Resolved]
  - Urticaria [Recovered/Resolved]
  - Contraindication to vaccination [Unknown]
